FAERS Safety Report 11866502 (Version 1)
Quarter: 2015Q4

REPORT INFORMATION
  Report Type: Spontaneous
  Country: DK (occurrence: DK)
  Receive Date: 20151224
  Receipt Date: 20151224
  Transmission Date: 20160305
  Serious: Yes (Life-Threatening)
  Sender: FDA-Public Use
  Company Number: DK-ROCHE-1683188

PATIENT
  Age: 63 Year
  Sex: Female

DRUGS (1)
  1. MABTHERA [Suspect]
     Active Substance: RITUXIMAB
     Indication: HAEMOLYSIS
     Dosage: DOSIS: MABTHERA IV 700 MG 4 GANGE, SIDST 13NOV2015
     Route: 042
     Dates: start: 20151023

REACTIONS (1)
  - Hepatic failure [Recovered/Resolved]

NARRATIVE: CASE EVENT DATE: 20151120
